FAERS Safety Report 24649334 (Version 2)
Quarter: 2024Q4

REPORT INFORMATION
  Report Type: Spontaneous
  Country: US (occurrence: US)
  Receive Date: 20241121
  Receipt Date: 20241220
  Transmission Date: 20250115
  Serious: No
  Sender: SANOFI AVENTIS
  Company Number: US-SA-2024SA337779

PATIENT
  Age: 41 Year
  Sex: Male

DRUGS (2)
  1. ALPROLIX [Suspect]
     Active Substance: EFTRENONACOG ALFA
     Indication: Factor IX deficiency
     Dosage: INFUSE 6000 UNITS (5400-6600) EVERY 7 DAYS FOR BLEEDING PROPHYLAXIS/6000 UNITS (5400-6600) EVERY 24-
     Route: 042
     Dates: start: 201207
  2. ALPROLIX [Suspect]
     Active Substance: EFTRENONACOG ALFA
     Indication: Factor IX deficiency
     Dosage: INFUSE 6000 UNITS (5400-6600) EVERY 7 DAYS FOR BLEEDING PROPHYLAXIS/6000 UNITS (5400-6600) EVERY 24-
     Route: 042
     Dates: start: 201207

REACTIONS (1)
  - Haemorrhage [Recovered/Resolved]

NARRATIVE: CASE EVENT DATE: 20240101
